FAERS Safety Report 4604617-0 (Version None)
Quarter: 2005Q2

REPORT INFORMATION
  Report Type: 
  Country: None (occurrence: None)
  Receive Date: 20050223
  Receipt Date: 20050112
  Transmission Date: 20051028
  Serious: No
  Sender: FDA-Public Use
  Company Number: PHEH2005US00802

PATIENT
  Age: 44 Year
  Sex: Female

DRUGS (2)
  1. ZELNORM [Suspect]
     Indication: IRRITABLE BOWEL SYNDROME
     Dosage: 6 MG, PRN, ORAL
     Route: 048
     Dates: start: 20030601
  2. ALCOHOL (ETHANOL) [Suspect]

REACTIONS (2)
  - ALCOHOL POISONING [None]
  - DIARRHOEA [None]
